FAERS Safety Report 9061200 (Version 1)
Quarter: 2013Q1

REPORT INFORMATION
  Report Type: Spontaneous
  Country: CA (occurrence: CA)
  Receive Date: 20130213
  Receipt Date: 20130213
  Transmission Date: 20140127
  Serious: Yes (Hospitalization, Other)
  Sender: FDA-Public Use
  Company Number: CA-AMGEN-CANSP2013008539

PATIENT
  Sex: Female

DRUGS (1)
  1. PROLIA [Suspect]
     Indication: PRODUCT USED FOR UNKNOWN INDICATION
     Dosage: UNK
     Dates: start: 20130123

REACTIONS (6)
  - Cholelithiasis [Unknown]
  - Paraesthesia oral [Unknown]
  - Abdominal discomfort [Unknown]
  - Dry eye [Unknown]
  - Injection site bruising [Unknown]
  - Erythema [Recovered/Resolved]
